FAERS Safety Report 26124308 (Version 1)
Quarter: 2025Q4

REPORT INFORMATION
  Report Type: Spontaneous
  Country: TR (occurrence: TR)
  Receive Date: 20251205
  Receipt Date: 20251205
  Transmission Date: 20260117
  Serious: Yes (Other)
  Sender: ROCHE
  Company Number: TR-ROCHE-10000452591

PATIENT
  Age: 51 Year
  Sex: Male

DRUGS (5)
  1. BEVACIZUMAB [Suspect]
     Active Substance: BEVACIZUMAB
     Indication: Colon cancer metastatic
     Route: 065
  2. OXALIPLATIN [Concomitant]
     Active Substance: OXALIPLATIN
  3. LEUCOVORIN [Concomitant]
     Active Substance: LEUCOVORIN\LEUCOVORIN CALCIUM
  4. FLUOROURACIL [Concomitant]
     Active Substance: FLUOROURACIL
  5. IRINOTECAN [Concomitant]
     Active Substance: IRINOTECAN

REACTIONS (1)
  - Encephalitis autoimmune [Unknown]
